FAERS Safety Report 10885033 (Version 1)
Quarter: 2015Q1

REPORT INFORMATION
  Report Type: Spontaneous
  Country: US (occurrence: US)
  Receive Date: 20150304
  Receipt Date: 20150304
  Transmission Date: 20150721
  Serious: No
  Sender: FDA-Public Use
  Company Number: US-TEVA-481147USA

PATIENT
  Age: 36 Year
  Sex: Female

DRUGS (3)
  1. PROBIOTICS [Concomitant]
     Active Substance: PROBIOTICS NOS
     Dates: start: 2013
  2. ANTIDEPRESSANTS [Concomitant]
     Active Substance: UNSPECIFIED INGREDIENT
     Dates: start: 2013
  3. CETIRIZINE W/PSEUDOEPHEDRINE ER [Suspect]
     Active Substance: CETIRIZINE HYDROCHLORIDE\PSEUDOEPHEDRINE HYDROCHLORIDE
     Indication: HYPERSENSITIVITY
     Dosage: CETIRIZINE HYDROCHLORIDE 5 MG/PSEUDOEPHEDRINE HYDROCHLORIDE
     Route: 048
     Dates: start: 201404, end: 201404

REACTIONS (1)
  - Drug ineffective [Unknown]

NARRATIVE: CASE EVENT DATE: 201404
